FAERS Safety Report 4347478-X (Version None)
Quarter: 2004Q2

REPORT INFORMATION
  Report Type: 
  Country: None (occurrence: None)
  Receive Date: 20040421
  Receipt Date: 20040213
  Transmission Date: 20050107
  Serious: Yes (Other)
  Sender: FDA-Public Use
  Company Number: 2003125614

PATIENT
  Sex: Female

DRUGS (3)
  1. RELPAX [Suspect]
     Indication: MIGRAINE
     Dosage: 20 MG (ONCE), ORAL
     Route: 048
     Dates: start: 20040115
  2. SERTRALINE HCL [Concomitant]
  3. OLANZAPINE [Concomitant]

REACTIONS (5)
  - ELEVATED MOOD [None]
  - ENERGY INCREASED [None]
  - INSOMNIA [None]
  - MANIA [None]
  - THINKING ABNORMAL [None]
